FAERS Safety Report 6098731-3 (Version None)
Quarter: 2009Q1

REPORT INFORMATION
  Report Type: 
  Country: None (occurrence: None)
  Receive Date: 20090302
  Receipt Date: 20090226
  Transmission Date: 20090719
  Serious: Yes (Hospitalization)
  Sender: FDA-Public Use
  Company Number: US-ASTRAZENECA-2009UW05311

PATIENT
  Sex: Female
  Weight: 59.9 kg

DRUGS (9)
  1. TOPROL-XL [Suspect]
     Route: 048
  2. JANUVIA [Concomitant]
  3. STARLIX [Concomitant]
  4. LIPITOR [Concomitant]
  5. ASTOL [Concomitant]
  6. GLIPIZIDE [Concomitant]
  7. CATAPRES [Concomitant]
  8. LIDODERM [Concomitant]
  9. TUMS [Concomitant]

REACTIONS (3)
  - FALL [None]
  - FISTULA [None]
  - UPPER LIMB FRACTURE [None]
